FAERS Safety Report 5978540-3 (Version None)
Quarter: 2008Q4

REPORT INFORMATION
  Report Type: 
  Country: None (occurrence: None)
  Receive Date: 20081204
  Receipt Date: 20080415
  Transmission Date: 20090506
  Serious: No
  Sender: FDA-Public Use
  Company Number: US-BAYER-200811022BCC

PATIENT
  Age: 84 Year
  Sex: Female
  Weight: 68 kg

DRUGS (6)
  1. ALEVE (CAPLET) [Suspect]
     Indication: NASOPHARYNGITIS
     Dosage: TOTAL DAILY DOSE: 220 MG  UNIT DOSE: 220 MG
     Route: 048
     Dates: start: 20080306
  2. PROTONIX [Concomitant]
  3. LEXAPRO [Concomitant]
  4. DIOVAN [Concomitant]
  5. ZOCOR [Concomitant]
  6. ZANTAC [Concomitant]

REACTIONS (1)
  - INSOMNIA [None]
